FAERS Safety Report 7009120-9 (Version None)
Quarter: 2010Q3

REPORT INFORMATION
  Report Type: 
  Country: None (occurrence: None)
  Receive Date: 20100923
  Receipt Date: 20100512
  Transmission Date: 20110219
  Serious: No
  Sender: FDA-Public Use
  Company Number: US-MYLANLABS-2010S1008641

PATIENT
  Age: 49 Year
  Sex: Male

DRUGS (1)
  1. ENALAPRIL MALEATE [Suspect]
     Indication: BLOOD PRESSURE INCREASED
     Route: 048
     Dates: start: 20090101

REACTIONS (2)
  - EYELID OEDEMA [None]
  - MIGRAINE [None]
